FAERS Safety Report 14298164 (Version 1)
Quarter: 2017Q4

REPORT INFORMATION
  Report Type: Spontaneous
  Country: US (occurrence: BE)
  Receive Date: 20171218
  Receipt Date: 20171218
  Transmission Date: 20180321
  Serious: Yes (Other)
  Sender: FDA-Public Use
  Company Number: US-SUNOVION-2017SUN005360

PATIENT

DRUGS (13)
  1. D VITAL [Concomitant]
     Active Substance: CALCIUM CARBONATE\CHOLECALCIFEROL
  2. PERINDOPRIL SANDOZ [Concomitant]
     Active Substance: PERINDOPRIL
  3. DAFALGAN [Concomitant]
     Active Substance: ACETAMINOPHEN
     Dosage: 1 G, UNK
  4. ZITROMAX [Concomitant]
     Active Substance: AZITHROMYCIN
  5. INDACATEROL AND GLYCOPYRROLATE [Suspect]
     Active Substance: GLYCOPYRROLATE\INDACATEROL MALEATE
     Indication: CHRONIC OBSTRUCTIVE PULMONARY DISEASE
     Dosage: 85/ 43 UG, UNK
     Route: 055
     Dates: start: 201710
  6. INDACATEROL AND GLYCOPYRROLATE [Suspect]
     Active Substance: GLYCOPYRROLATE\INDACATEROL MALEATE
     Indication: BRONCHITIS
  7. INDACATEROL AND GLYCOPYRROLATE [Suspect]
     Active Substance: GLYCOPYRROLATE\INDACATEROL MALEATE
     Indication: EMPHYSEMA
  8. APOCARD [Concomitant]
     Active Substance: FLECAINIDE ACETATE
  9. DUOVENT [Concomitant]
     Active Substance: FENOTEROL HYDROBROMIDE
  10. ZOLPIDEM [Concomitant]
     Active Substance: ZOLPIDEM\ZOLPIDEM TARTRATE
  11. D-CURE [Concomitant]
     Active Substance: CHOLECALCIFEROL
     Dosage: 2500/1 IU/ML
  12. FUROSEMIDE EG [Concomitant]
     Dosage: 40 MG, UNK
  13. ALPRAZOLAM EG [Concomitant]
     Active Substance: ALPRAZOLAM

REACTIONS (2)
  - Arterial occlusive disease [Unknown]
  - Pain in extremity [Unknown]

NARRATIVE: CASE EVENT DATE: 201711
